FAERS Safety Report 4636695-7 (Version None)
Quarter: 2005Q2

REPORT INFORMATION
  Report Type: 
  Country: None (occurrence: None)
  Receive Date: 20050414
  Receipt Date: 20050405
  Transmission Date: 20051028
  Serious: Yes (Death, Hospitalization)
  Sender: FDA-Public Use
  Company Number: 2003-12-0803

PATIENT
  Age: 58 Year
  Sex: Female
  Weight: 54 kg

DRUGS (16)
  1. PEG-INTRON [Suspect]
     Indication: HEPATITIS C
     Dosage: 80 MCG QWK SUBCUTANEOUS
     Route: 058
     Dates: start: 20030925, end: 20031107
  2. REBETOL [Suspect]
     Indication: HEPATITIS C
     Dosage: 800 MG QD ORAL
     Route: 048
     Dates: start: 20030925, end: 20031109
  3. CIPROFLOXACIN [Concomitant]
  4. CEFEPIME [Concomitant]
  5. PARACETAMOL [Concomitant]
  6. DICLOFENAC SODIUM [Concomitant]
  7. LEVOFLOXACIN [Concomitant]
  8. METHYLPREDNISONE [Concomitant]
  9. ISONIAZID [Concomitant]
  10. PYRAZINAMIDE [Concomitant]
  11. RIFAMPICIN [Concomitant]
  12. SOLTRIM [Concomitant]
  13. CYCLOPHOSPHAMIDE [Concomitant]
  14. MIDAZOLAM HCL [Concomitant]
  15. TRAMADOL HCL [Concomitant]
  16. PIPERACILLIN SODIUM [Concomitant]

REACTIONS (7)
  - ALVEOLITIS [None]
  - GENERAL PHYSICAL HEALTH DETERIORATION [None]
  - INTERSTITIAL LUNG DISEASE [None]
  - PULMONARY FIBROSIS [None]
  - RESPIRATORY FAILURE [None]
  - RESPIRATORY TRACT INFECTION [None]
  - SUPERINFECTION [None]
